FAERS Safety Report 4357543-9 (Version None)
Quarter: 2004Q2

REPORT INFORMATION
  Report Type: 
  Country: None (occurrence: None)
  Receive Date: 20040506
  Receipt Date: 20040427
  Transmission Date: 20050107
  Serious: Yes (Death, Hospitalization)
  Sender: FDA-Public Use
  Company Number: 163-20785-03090726

PATIENT
  Age: 56 Year
  Sex: Male

DRUGS (5)
  1. THALOMID [Suspect]
     Indication: MULTIPLE MYELOMA
     Dosage: 200 MG, QD, ORAL
     Route: 048
     Dates: start: 20030401, end: 20040303
  2. EPOGEN [Concomitant]
  3. PAXIL [Concomitant]
  4. PREVACID [Concomitant]
  5. PERCOCET [Concomitant]

REACTIONS (3)
  - ACUTE MYOCARDIAL INFARCTION [None]
  - DIVERTICULITIS [None]
  - LOWER GASTROINTESTINAL HAEMORRHAGE [None]
